FAERS Safety Report 15776798 (Version 3)
Quarter: 2019Q3

REPORT INFORMATION
  Report Type: Spontaneous
  Country: US (occurrence: US)
  Receive Date: 20181231
  Receipt Date: 20190716
  Transmission Date: 20191004
  Serious: No
  Sender: FDA-Public Use
  Company Number: US-PFIZER INC-2018528359

PATIENT
  Age: 64 Year
  Sex: Female
  Weight: 45.36 kg

DRUGS (6)
  1. LYRICA [Suspect]
     Active Substance: PREGABALIN
     Dosage: 100 MG, UNK
     Dates: start: 201901
  2. LYRICA [Suspect]
     Active Substance: PREGABALIN
     Indication: PAIN IN EXTREMITY
     Dosage: 50 MG, THREE TIMES A DAY
     Dates: start: 201807
  3. PARACETAMOL [Concomitant]
     Active Substance: ACETAMINOPHEN
     Indication: PAIN IN EXTREMITY
     Dosage: 2 DF, AS NEEDED (4 HOURS AFTER LYRICA)
  4. LYRICA [Suspect]
     Active Substance: PREGABALIN
     Dosage: UNK
     Dates: start: 201809
  5. TYLENOL [Concomitant]
     Active Substance: ACETAMINOPHEN
     Indication: PAIN IN EXTREMITY
     Dosage: UNK, AS NEEDED (4 HOURS AFTER LYRICA)
  6. LYRICA [Suspect]
     Active Substance: PREGABALIN
     Dosage: 100 MG, THREE TIMES A DAY

REACTIONS (5)
  - Product dose omission [Recovered/Resolved]
  - Weight increased [Unknown]
  - Withdrawal syndrome [Recovered/Resolved]
  - Irritability [Recovered/Resolved]
  - Feeling abnormal [Recovered/Resolved]

NARRATIVE: CASE EVENT DATE: 201811
